FAERS Safety Report 24311998 (Version 2)
Quarter: 2024Q3

REPORT INFORMATION
  Report Type: Spontaneous
  Country: US (occurrence: US)
  Receive Date: 20240912
  Receipt Date: 20240917
  Transmission Date: 20241016
  Serious: No
  Sender: Haleon PLC
  Company Number: US-HALEON-2196110

PATIENT
  Age: 63 Year
  Sex: Female

DRUGS (1)
  1. ADVIL LIQUI-GELS [Suspect]
     Active Substance: IBUPROFEN
     Indication: Back pain
     Dates: start: 20240906, end: 20240906

REACTIONS (10)
  - Eye pruritus [Unknown]
  - Dysarthria [Unknown]
  - Feeling hot [Unknown]
  - Erythema [Unknown]
  - Palpitations [Unknown]
  - Hypoaesthesia oral [Unknown]
  - Rash macular [Unknown]
  - Cough [Unknown]
  - Dyspnoea [Unknown]
  - Swelling [Unknown]

NARRATIVE: CASE EVENT DATE: 20240906
